FAERS Safety Report 4669043-7 (Version None)
Quarter: 2005Q2

REPORT INFORMATION
  Report Type: 
  Country: None (occurrence: None)
  Receive Date: 20050519
  Receipt Date: 20050507
  Transmission Date: 20051028
  Serious: Yes (Other)
  Sender: FDA-Public Use
  Company Number: 2005072673

PATIENT
  Age: 35 Year
  Sex: Female

DRUGS (2)
  1. BEXTRA [Suspect]
     Indication: RENAL PAIN
     Dosage: 40 MG ORAL
     Route: 048
  2. BEXTRA [Suspect]
     Indication: RENAL PAIN
     Dosage: PARENTERAL
     Route: 051

REACTIONS (2)
  - ABDOMINAL PAIN UPPER [None]
  - APHTHOUS STOMATITIS [None]
